FAERS Safety Report 6330291-1 (Version None)
Quarter: 2009Q3

REPORT INFORMATION
  Report Type: 
  Country: None (occurrence: None)
  Receive Date: 20090826
  Receipt Date: 20090826
  Transmission Date: 20100115
  Serious: Yes (Other)
  Sender: FDA-Public Use
  Company Number: None

PATIENT
  Sex: Male
  Weight: 105.2345 kg

DRUGS (2)
  1. METHYLPREDNISOLONE 4MG TAB [Suspect]
     Indication: BRONCHITIS
     Dosage: 24 MG DOWN TO 4 MG DAILY PO
     Route: 048
     Dates: start: 20090817, end: 20090819
  2. METHYLPREDNISOLONE 4MG TAB [Suspect]
     Indication: BRONCHITIS
     Dosage: 24 MG DOWN TO 4 MG DAILY PO
     Route: 048
     Dates: start: 20090818, end: 20090820

REACTIONS (10)
  - ABNORMAL BEHAVIOUR [None]
  - ACTIVITIES OF DAILY LIVING IMPAIRED [None]
  - AFFECT LABILITY [None]
  - ANXIETY [None]
  - DEPRESSION [None]
  - DISTURBANCE IN ATTENTION [None]
  - IMPAIRED DRIVING ABILITY [None]
  - INSOMNIA [None]
  - PERSONALITY CHANGE [None]
  - PSYCHOTIC DISORDER [None]
